FAERS Safety Report 20908077 (Version 2)
Quarter: 2022Q2

REPORT INFORMATION
  Report Type: Spontaneous
  Country: CH (occurrence: CH)
  Receive Date: 20220602
  Receipt Date: 20220606
  Transmission Date: 20220721
  Serious: Yes (Hospitalization, Other)
  Sender: FDA-Public Use
  Company Number: None

PATIENT
  Age: 17 Year
  Sex: Male

DRUGS (7)
  1. XANAX [Suspect]
     Active Substance: ALPRAZOLAM
     Dosage: 10-12 MG, DAILY
     Route: 048
  2. XANAX [Suspect]
     Active Substance: ALPRAZOLAM
     Dosage: 6 MG
     Route: 048
     Dates: start: 20211117, end: 20211117
  3. QUETIAPINE [Suspect]
     Active Substance: QUETIAPINE
     Dosage: 125 MG IN TOTAL
     Route: 048
     Dates: start: 20211117, end: 20211117
  4. FLUNITRAZEPAM [Suspect]
     Active Substance: FLUNITRAZEPAM
     Dosage: 5 MG, DAILY
     Route: 048
  5. CODEINE PHOSPHATE [Suspect]
     Active Substance: CODEINE PHOSPHATE
     Dosage: 50 MG, DAILY
     Route: 065
  6. VALIUM [Suspect]
     Active Substance: DIAZEPAM
     Dosage: 1 DF RARE
     Route: 065
  7. CANNABIS SATIVA SUBSP. INDICA TOP [Suspect]
     Active Substance: CANNABIS SATIVA SUBSP. INDICA TOP
     Dosage: UNK, DAILY

REACTIONS (7)
  - Neutropenia [Not Recovered/Not Resolved]
  - Leukopenia [Not Recovered/Not Resolved]
  - Overdose [Unknown]
  - Drug abuse [Unknown]
  - Haemoglobin increased [Unknown]
  - Megakaryocytes abnormal [Unknown]
  - Off label use [Unknown]
